FAERS Safety Report 6241581-5 (Version None)
Quarter: 2009Q2

REPORT INFORMATION
  Report Type: 
  Country: None (occurrence: None)
  Receive Date: 20090623
  Receipt Date: 20041126
  Transmission Date: 20091009
  Serious: Yes (Hospitalization)
  Sender: FDA-Public Use
  Company Number: BE-ROCHE-385839

PATIENT
  Sex: Male

DRUGS (28)
  1. DACLIZUMAB [Suspect]
     Route: 042
     Dates: start: 20041006
  2. DACLIZUMAB [Suspect]
     Route: 042
     Dates: start: 20041020
  3. MYCOPHENOLATE MOFETIL [Suspect]
     Route: 048
     Dates: start: 20041006
  4. CYCLOSPORINE [Suspect]
     Route: 048
     Dates: start: 20041006
  5. CYCLOSPORINE [Suspect]
     Route: 048
     Dates: start: 20041010
  6. CYCLOSPORINE [Suspect]
     Route: 048
     Dates: start: 20041028
  7. CYCLOSPORINE [Suspect]
     Route: 048
     Dates: start: 20041116
  8. METHYLPREDNISOLONE [Suspect]
     Route: 048
     Dates: start: 20041006
  9. METHYLPREDNISOLONE [Suspect]
     Route: 048
     Dates: start: 20041007
  10. METHYLPREDNISOLONE [Suspect]
     Route: 048
     Dates: start: 20041025
  11. METHYLPREDNISOLONE [Suspect]
     Route: 048
     Dates: start: 20041116
  12. METHYLPREDNISOLONE [Suspect]
     Route: 048
     Dates: start: 20041207
  13. METHYLPREDNISOLONE [Suspect]
     Route: 048
     Dates: start: 20041220
  14. METHYLPREDNISOLONE [Suspect]
     Route: 048
     Dates: start: 20050104
  15. SELOZOK [Concomitant]
     Route: 048
     Dates: start: 20041103
  16. SELOZOK [Concomitant]
     Route: 048
     Dates: start: 20041115
  17. AMLODIPINE [Concomitant]
     Route: 048
     Dates: start: 20041025
  18. HUMAN INSULIN [Concomitant]
     Route: 058
     Dates: start: 20041007
  19. LACTULOSE [Concomitant]
     Route: 048
     Dates: start: 20041012
  20. LISINOPRIL [Concomitant]
     Route: 048
     Dates: start: 20041011
  21. LISINOPRIL [Concomitant]
     Route: 048
     Dates: start: 20041027
  22. LISINOPRIL [Concomitant]
     Route: 048
     Dates: start: 20041108, end: 20041109
  23. LISINOPRIL [Concomitant]
     Route: 048
     Dates: start: 20041208
  24. LISINOPRIL [Concomitant]
     Route: 048
     Dates: start: 20041214
  25. LISINOPRIL [Concomitant]
     Route: 048
     Dates: start: 20041221
  26. LISINOPRIL [Concomitant]
     Route: 048
     Dates: start: 20041228
  27. PRAVASTATIN [Concomitant]
     Route: 048
     Dates: start: 20040101
  28. PRAVASTATIN [Concomitant]
     Route: 048
     Dates: start: 20041108

REACTIONS (1)
  - RENAL IMPAIRMENT [None]
